FAERS Safety Report 16166422 (Version 1)
Quarter: 2019Q2

REPORT INFORMATION
  Report Type: Spontaneous
  Country: US (occurrence: US)
  Receive Date: 20190407
  Receipt Date: 20190407
  Transmission Date: 20190711
  Serious: No
  Sender: FDA-Public Use
  Company Number: US-BIOGEN-2019BI00714467

PATIENT
  Age: 46 Year
  Sex: Male
  Weight: 74.91 kg

DRUGS (6)
  1. BACLOFEN. [Concomitant]
     Active Substance: BACLOFEN
     Route: 065
  2. CARBAMAZEPINE. [Concomitant]
     Active Substance: CARBAMAZEPINE
     Route: 065
  3. TECFIDERA [Suspect]
     Active Substance: DIMETHYL FUMARATE
     Indication: MULTIPLE SCLEROSIS
     Route: 048
     Dates: start: 20190220
  4. TYLENOL [Concomitant]
     Active Substance: ACETAMINOPHEN
     Route: 065
  5. VALPROIC ACID. [Concomitant]
     Active Substance: VALPROIC ACID
     Route: 065
  6. LEVETIRACETAM. [Concomitant]
     Active Substance: LEVETIRACETAM
     Route: 065

REACTIONS (4)
  - Erythema [Unknown]
  - Flushing [Recovered/Resolved]
  - Multiple sclerosis relapse [Unknown]
  - Balance disorder [Unknown]

NARRATIVE: CASE EVENT DATE: 20190220
